FAERS Safety Report 11487177 (Version 2)
Quarter: 2015Q4

REPORT INFORMATION
  Report Type: Spontaneous
  Country: IT (occurrence: IT)
  Receive Date: 20150910
  Receipt Date: 20151014
  Transmission Date: 20160304
  Serious: Yes (Other)
  Sender: FDA-Public Use
  Company Number: IT-AMGEN-ITASP2015091867

PATIENT
  Age: 66 Year
  Sex: Female

DRUGS (4)
  1. PROLIA [Suspect]
     Active Substance: DENOSUMAB
     Indication: SPINAL FRACTURE
  2. VITAMIN D                          /00107901/ [Concomitant]
     Active Substance: ERGOCALCIFEROL
     Dosage: 25000 IU, UNK
     Route: 048
  3. PROLIA [Suspect]
     Active Substance: DENOSUMAB
     Indication: OSTEOPOROSIS PROPHYLAXIS
     Dosage: 60 MG, Q6MO
     Route: 058
     Dates: start: 20140601, end: 20150615
  4. CALCIUM [Concomitant]
     Active Substance: CALCIUM
     Dosage: 1 G, UNK
     Route: 048

REACTIONS (5)
  - Rubber sensitivity [Unknown]
  - Herpes zoster [Recovering/Resolving]
  - Urticaria vesiculosa [Recovered/Resolved]
  - Dermatitis bullous [Recovered/Resolved]
  - Rash pustular [Unknown]

NARRATIVE: CASE EVENT DATE: 20150620
